FAERS Safety Report 13400473 (Version 4)
Quarter: 2017Q3

REPORT INFORMATION
  Report Type: Report from Study
  Country: None (occurrence: ES)
  Receive Date: 20170404
  Receipt Date: 20170802
  Transmission Date: 20171127
  Serious: Yes (Hospitalization, Other)
  Sender: FDA-Public Use
  Company Number: ES-ABBVIE-17K-144-1930660-00

PATIENT
  Age: 34 Year
  Sex: Female
  Weight: 53 kg

DRUGS (3)
  1. HUMIRA [Suspect]
     Active Substance: ADALIMUMAB
     Route: 058
     Dates: start: 20160704, end: 201702
  2. HUMIRA [Suspect]
     Active Substance: ADALIMUMAB
     Indication: CROHN^S DISEASE
     Route: 058
     Dates: start: 2010, end: 2015
  3. HUMIRA [Suspect]
     Active Substance: ADALIMUMAB
     Route: 058
     Dates: start: 20170421, end: 20170526

REACTIONS (6)
  - Female genital tract fistula [Not Recovered/Not Resolved]
  - Perineal pain [Recovering/Resolving]
  - Crohn^s disease [Unknown]
  - Pyrexia [Recovered/Resolved]
  - Abscess [Not Recovered/Not Resolved]
  - Rectovaginal septum abscess [Recovering/Resolving]

NARRATIVE: CASE EVENT DATE: 2015
